FAERS Safety Report 9190657 (Version 1)
Quarter: 2013Q1

REPORT INFORMATION
  Report Type: Spontaneous
  Country: JP (occurrence: JP)
  Receive Date: 20130326
  Receipt Date: 20130326
  Transmission Date: 20140127
  Serious: Yes (Other)
  Sender: FDA-Public Use
  Company Number: JP-PFIZER INC-2013093678

PATIENT
  Age: 74 Year
  Sex: Female

DRUGS (1)
  1. GABAPEN [Suspect]
     Dosage: 200 MG, 2X/DAY
     Route: 048

REACTIONS (1)
  - Intraocular pressure increased [Unknown]
